FAERS Safety Report 12979474 (Version 2)
Quarter: 2016Q4

REPORT INFORMATION
  Report Type: Spontaneous
  Country: IT (occurrence: IT)
  Receive Date: 20161128
  Receipt Date: 20161129
  Transmission Date: 20170207
  Serious: Yes (Hospitalization, Other)
  Sender: FDA-Public Use
  Company Number: IT-PFIZER INC-2016549123

PATIENT
  Age: 64 Year
  Sex: Female

DRUGS (3)
  1. TICLOPIDINE [Concomitant]
     Active Substance: TICLOPIDINE
     Indication: ARTERIOSCLEROSIS CORONARY ARTERY
     Dosage: 250 MG, UNK
     Dates: start: 20150101
  2. TOVANIRA [Concomitant]
     Indication: HYPERCHOLESTEROLAEMIA
     Dosage: 10 MG, UNK
     Route: 048
     Dates: start: 20150101
  3. XANAX [Suspect]
     Active Substance: ALPRAZOLAM
     Indication: ANXIETY
     Dosage: 70 DF, DAILY
     Route: 048
     Dates: start: 20160601, end: 20161006

REACTIONS (2)
  - Drug abuse [Unknown]
  - Bradyphrenia [Recovered/Resolved]

NARRATIVE: CASE EVENT DATE: 2016
